FAERS Safety Report 9702424 (Version 1)
Quarter: 2013Q4

REPORT INFORMATION
  Report Type: Spontaneous
  Country: ES (occurrence: None)
  Receive Date: 20131120
  Receipt Date: 20131120
  Transmission Date: 20140711
  Serious: Yes (Other)
  Sender: FDA-Public Use
  Company Number: 2023692

PATIENT
  Sex: Female

DRUGS (2)
  1. METHOTREXATE [Suspect]
     Indication: ACUTE LYMPHOCYTIC LEUKAEMIA
     Route: 037
  2. CHEMOTHERAPEUTICS [Suspect]
     Indication: ACUTE LYMPHOCYTIC LEUKAEMIA
     Route: 037

REACTIONS (3)
  - Lennox-Gastaut syndrome [None]
  - Microangiopathy [None]
  - Convulsion [None]
